FAERS Safety Report 16849084 (Version 5)
Quarter: 2021Q4

REPORT INFORMATION
  Report Type: Spontaneous
  Country: JP (occurrence: None)
  Receive Date: 20190925
  Receipt Date: 20211206
  Transmission Date: 20220303
  Serious: Yes (Life-Threatening)
  Sender: FDA-Public Use
  Company Number: 2019SF34866

PATIENT
  Age: 24988 Day
  Sex: Female
  Weight: 53 kg

DRUGS (15)
  1. FASENRA [Suspect]
     Active Substance: BENRALIZUMAB
     Indication: Asthma
     Dosage: 30.0MG UNKNOWN
     Route: 058
     Dates: start: 20180516, end: 201909
  2. NEXIUM [Concomitant]
     Active Substance: ESOMEPRAZOLE MAGNESIUM
     Indication: Gastrooesophageal reflux disease
     Route: 048
     Dates: start: 20150213
  3. FLUTICASONE PROPIONATE\FORMOTEROL FUMARATE [Concomitant]
     Active Substance: FLUTICASONE PROPIONATE\FORMOTEROL FUMARATE
     Indication: Asthma
     Route: 065
     Dates: start: 20150503
  4. FLUTIDE [Concomitant]
     Indication: Asthma
     Route: 055
     Dates: start: 20190308
  5. UNSPECIFIED INGREDIENT [Concomitant]
     Active Substance: UNSPECIFIED INGREDIENT
     Dosage: UNKNOWN
     Route: 065
  6. OTHER ANTIALLERGIC AGENTS [Concomitant]
     Dosage: UNKNOWN
     Route: 065
  7. LEVOTHYROXINE [Concomitant]
     Active Substance: LEVOTHYROXINE
     Indication: Post procedural hypothyroidism
     Route: 048
     Dates: start: 20150406
  8. THEOPHYLLINE ANHYDROUS [Concomitant]
     Active Substance: THEOPHYLLINE ANHYDROUS
     Indication: Asthma
     Route: 048
  9. ALESION [Concomitant]
     Active Substance: EPINASTINE HYDROCHLORIDE
     Indication: Asthma
     Route: 048
     Dates: start: 20150213
  10. MONTELUKAST [Concomitant]
     Active Substance: MONTELUKAST SODIUM
     Indication: Asthma
     Route: 048
     Dates: start: 20150213
  11. CARBOCYSTEINE [Concomitant]
     Active Substance: CARBOCYSTEINE
     Indication: Asthma
     Route: 048
     Dates: start: 20150913
  12. THEOPHYLLINE [Concomitant]
     Active Substance: THEOPHYLLINE
     Indication: Asthma
     Dosage: DOSE UNKNOWN
     Route: 048
  13. UNSPECIFIED INGREDIENT [Concomitant]
     Active Substance: UNSPECIFIED INGREDIENT
     Dosage: DOSE UNKNOWN
     Route: 048
  14. PREDONINE [Concomitant]
     Active Substance: PREDNISOLONE
     Indication: Asthma
     Route: 048
     Dates: start: 20190906, end: 20190910
  15. SPIRIVA [Concomitant]
     Active Substance: TIOTROPIUM BROMIDE MONOHYDRATE
     Indication: Asthma
     Route: 055
     Dates: start: 20190906

REACTIONS (4)
  - Asthma [Recovering/Resolving]
  - Neutralising antibodies [Recovering/Resolving]
  - Eosinophilia [Recovered/Resolved]
  - Therapeutic product effect decreased [Unknown]

NARRATIVE: CASE EVENT DATE: 20190906
